FAERS Safety Report 17902779 (Version 3)
Quarter: 2022Q1

REPORT INFORMATION
  Report Type: Spontaneous
  Country: JP (occurrence: JP)
  Receive Date: 20200616
  Receipt Date: 20220128
  Transmission Date: 20220423
  Serious: Yes (Other)
  Sender: FDA-Public Use
  Company Number: JP-PFIZER INC-2020176234

PATIENT
  Age: 66 Year
  Sex: Male

DRUGS (5)
  1. INLYTA [Suspect]
     Active Substance: AXITINIB
     Indication: Renal cell carcinoma
     Dosage: 10 MG, DAILY
     Route: 048
     Dates: start: 20200414
  2. BAVENCIO [Suspect]
     Active Substance: AVELUMAB
     Dosage: 600 MG, DAILY
     Route: 041
     Dates: start: 20200414, end: 202004
  3. BAVENCIO [Suspect]
     Active Substance: AVELUMAB
     Dosage: 525 MG, DAILY
     Route: 041
     Dates: start: 20200428, end: 202004
  4. BAVENCIO [Suspect]
     Active Substance: AVELUMAB
     Dosage: 520 MG, DAILY
     Route: 041
     Dates: start: 20200512
  5. BAVENCIO [Suspect]
     Active Substance: AVELUMAB
     Dosage: 520 MG, DAILY
     Route: 041
     Dates: start: 20200611, end: 202010

REACTIONS (10)
  - Hypertension [Recovered/Resolved]
  - Chronic kidney disease [Unknown]
  - Hyperkalaemia [Unknown]
  - Abdominal distension [Recovered/Resolved]
  - Weight fluctuation [Unknown]
  - Blood alkaline phosphatase decreased [Unknown]
  - Hyperuricaemia [Unknown]
  - Anaemia [Unknown]
  - Blood creatinine increased [Unknown]
  - Protein urine present [Unknown]

NARRATIVE: CASE EVENT DATE: 20200101
